FAERS Safety Report 10469669 (Version 1)
Quarter: 2014Q3

REPORT INFORMATION
  Report Type: Spontaneous
  Country: US (occurrence: US)
  Receive Date: 20140923
  Receipt Date: 20140923
  Transmission Date: 20150326
  Serious: No
  Sender: FDA-Public Use
  Company Number: US-PFIZER INC-2014257925

PATIENT
  Age: 31 Year
  Sex: Female

DRUGS (1)
  1. FLECTOR [Suspect]
     Active Substance: DICLOFENAC EPOLAMINE
     Indication: PAIN
     Dosage: 180 MG, 2X/DAY
     Route: 062

REACTIONS (4)
  - Abdominal distension [Unknown]
  - Therapeutic response changed [Unknown]
  - Fatigue [Unknown]
  - Off label use [Unknown]
